FAERS Safety Report 14046731 (Version 2)
Quarter: 2017Q4

REPORT INFORMATION
  Report Type: Report from Study
  Country: AR (occurrence: AR)
  Receive Date: 20171005
  Receipt Date: 20171103
  Transmission Date: 20180321
  Serious: Yes (Hospitalization)
  Sender: FDA-Public Use
  Company Number: PHHY2017AR144815

PATIENT
  Age: 55 Year
  Sex: Female
  Weight: 142 kg

DRUGS (1)
  1. COSENTYX [Suspect]
     Active Substance: SECUKINUMAB
     Indication: PSORIASIS
     Dosage: 300 MG, QMO (EVERY 28 DAYS)
     Route: 065
     Dates: start: 20161216

REACTIONS (10)
  - Cardiac disorder [Recovered/Resolved]
  - Drug ineffective [Unknown]
  - Abdominal pain upper [Recovered/Resolved]
  - Inappropriate schedule of drug administration [Unknown]
  - Contusion [Unknown]
  - Psoriasis [Unknown]
  - Wrong technique in product usage process [Unknown]
  - Pancreatitis [Recovered/Resolved]
  - Chest pain [Recovered/Resolved]
  - Weight increased [Unknown]

NARRATIVE: CASE EVENT DATE: 20161216
